FAERS Safety Report 5130109-9 (Version None)
Quarter: 2006Q4

REPORT INFORMATION
  Report Type: 
  Country: None (occurrence: None)
  Receive Date: 20061013
  Receipt Date: 20060926
  Transmission Date: 20070319
  Serious: Yes (Other)
  Sender: FDA-Public Use
  Company Number: CA200606006067

PATIENT
  Age: 18 Year
  Sex: Male
  Weight: 59 kg

DRUGS (2)
  1. STRATTERA [Suspect]
     Indication: ATTENTION DEFICIT/HYPERACTIVITY DISORDER
     Dosage: SEE IMAGE
     Route: 048
     Dates: start: 20050301, end: 20051026
  2. STRATTERA [Suspect]
     Indication: ATTENTION DEFICIT/HYPERACTIVITY DISORDER
     Dosage: SEE IMAGE
     Route: 048
     Dates: start: 20051027

REACTIONS (7)
  - DEPRESSION [None]
  - HAEMORRHAGE [None]
  - INTENTIONAL SELF-INJURY [None]
  - LACERATION [None]
  - SUICIDAL IDEATION [None]
  - SUICIDE ATTEMPT [None]
  - WOUND [None]
